FAERS Safety Report 17839138 (Version 1)
Quarter: 2020Q2

REPORT INFORMATION
  Report Type: Spontaneous
  Country: US (occurrence: US)
  Receive Date: 20200528
  Receipt Date: 20200528
  Transmission Date: 20200714
  Serious: Yes (Disabling, Other)
  Sender: FDA-Public Use
  Company Number: None

PATIENT
  Age: 46 Year
  Sex: Female
  Weight: 139.95 kg

DRUGS (8)
  1. FLONASE [Concomitant]
     Active Substance: FLUTICASONE PROPIONATE
  2. CALCIUM [Concomitant]
     Active Substance: CALCIUM
  3. CALCITRIOL. [Concomitant]
     Active Substance: CALCITRIOL
  4. ZYRTEC [Concomitant]
     Active Substance: CETIRIZINE HYDROCHLORIDE
  5. NP THYROID [Suspect]
     Active Substance: LEVOTHYROXINE\LIOTHYRONINE
     Indication: HYPOTHYROIDISM
     Route: 048
  6. ALBUTERNOL [Concomitant]
  7. ARMOUR THYROID [Concomitant]
     Active Substance: THYROID, PORCINE
  8. CPAP MACHINE [Concomitant]

REACTIONS (19)
  - Malaise [None]
  - Fatigue [None]
  - Alopecia [None]
  - Arthralgia [None]
  - Palpitations [None]
  - Anxiety [None]
  - Insomnia [None]
  - Tachyphrenia [None]
  - Recalled product [None]
  - Sensation of blood flow [None]
  - Hyperhidrosis [None]
  - Product substitution issue [None]
  - Nervousness [None]
  - Nightmare [None]
  - Myalgia [None]
  - Fluid retention [None]
  - Fear of disease [None]
  - Chest pain [None]
  - Feeling abnormal [None]

NARRATIVE: CASE EVENT DATE: 20200215
